FAERS Safety Report 7718508-X (Version None)
Quarter: 2011Q3

REPORT INFORMATION
  Report Type: 
  Country: None (occurrence: None)
  Receive Date: 20110830
  Receipt Date: 20110826
  Transmission Date: 20111222
  Serious: No
  Sender: FDA-Public Use
  Company Number: US-PFIZER INC-2011199674

PATIENT
  Sex: Female

DRUGS (1)
  1. ADVIL LIQUI-GELS [Suspect]
     Indication: BACK PAIN
     Dosage: 400 MG, EVERY 4 TO 6 HOURS
     Route: 048
     Dates: start: 20110822, end: 20110824

REACTIONS (1)
  - DRUG INEFFECTIVE [None]
